FAERS Safety Report 5825891-9 (Version None)
Quarter: 2008Q3

REPORT INFORMATION
  Report Type: 
  Country: None (occurrence: None)
  Receive Date: 20080729
  Receipt Date: 20080717
  Transmission Date: 20090109
  Serious: Yes (Life-Threatening)
  Sender: FDA-Public Use
  Company Number: US-TYCO HEALTHCARE/MALLINCKRODT-T200801207

PATIENT

DRUGS (2)
  1. OCTREOSCAN [Suspect]
     Indication: NEUROENDOCRINE TUMOUR
     Dosage: FIRST CYCLE
  2. OCTREOSCAN [Suspect]
     Dosage: SECOND CYCLE

REACTIONS (2)
  - GASTROINTESTINAL HAEMORRHAGE [None]
  - OFF LABEL USE [None]
